FAERS Safety Report 8765524 (Version 2)
Quarter: 2012Q4

REPORT INFORMATION
  Report Type: 
  Country: JP (occurrence: JP)
  Receive Date: 20120903
  Receipt Date: 20120928
  Transmission Date: 20130627
  Serious: Yes (Death)
  Sender: FDA-Public Use
  Company Number: JP-BRISTOL-MYERS SQUIBB COMPANY-16916744

PATIENT
  Age: 70 Year
  Sex: Male
  Weight: 58 kg

DRUGS (12)
  1. ORENCIA [Suspect]
     Indication: RHEUMATOID ARTHRITIS
     Dosage: 29Sep2010, 1Aug12
     Dates: start: 20100929
  2. METHOTREXATE [Concomitant]
     Indication: RHEUMATOID ARTHRITIS
  3. TACROLIMUS [Concomitant]
     Indication: RHEUMATOID ARTHRITIS
  4. GASLON N [Concomitant]
  5. SOFALCONE [Concomitant]
     Dosage: Scowe GRA
  6. AMLODIN [Concomitant]
     Indication: HYPERTENSION
  7. BLOPRESS [Concomitant]
     Indication: HYPERTENSION
  8. ANTOBRON [Concomitant]
     Indication: PRODUCTIVE COUGH
  9. HALCION [Concomitant]
  10. SERMION [Concomitant]
     Indication: CEREBRAL INFARCTION
  11. URINORM [Concomitant]
  12. CELECOXIB [Concomitant]
     Indication: RHEUMATOID ARTHRITIS

REACTIONS (1)
  - Myocardial infarction [Fatal]
